FAERS Safety Report 6092520-1 (Version None)
Quarter: 2009Q1

REPORT INFORMATION
  Report Type: 
  Country: None (occurrence: None)
  Receive Date: 20090223
  Receipt Date: 20090223
  Transmission Date: 20090719
  Serious: Yes (Hospitalization)
  Sender: FDA-Public Use
  Company Number: None

PATIENT
  Age: 67 Year
  Sex: Female
  Weight: 61.9 kg

DRUGS (6)
  1. PARICALCITOL [Suspect]
     Indication: PANCREATIC CARCINOMA
     Dosage: 4.69 MCG/KG EVERY WK X 3 IV
     Route: 042
     Dates: start: 20090203
  2. PARICALCITOL [Suspect]
     Indication: PANCREATIC CARCINOMA
     Dosage: 4.69 MCG/KG EVERY WK X 3 IV
     Route: 042
     Dates: start: 20090210
  3. PARICALCITOL [Suspect]
     Indication: PANCREATIC CARCINOMA
     Dosage: 4.69 MCG/KG EVERY WK X 3 IV
     Route: 042
     Dates: start: 20090217
  4. GEMCITABINE HCL [Suspect]
     Indication: PANCREATIC CARCINOMA
     Dosage: 800 MG/M2 EVERY WK X 3 IV
     Route: 042
     Dates: start: 20090204
  5. GEMCITABINE HCL [Suspect]
     Indication: PANCREATIC CARCINOMA
     Dosage: 800 MG/M2 EVERY WK X 3 IV
     Route: 042
     Dates: start: 20090211
  6. GEMCITABINE HCL [Suspect]
     Indication: PANCREATIC CARCINOMA
     Dosage: 800 MG/M2 EVERY WK X 3 IV
     Route: 042
     Dates: start: 20090218

REACTIONS (1)
  - HIP FRACTURE [None]
